FAERS Safety Report 6696693-9 (Version None)
Quarter: 2010Q2

REPORT INFORMATION
  Report Type: 
  Country: None (occurrence: None)
  Receive Date: 20100426
  Receipt Date: 20100319
  Transmission Date: 20101027
  Serious: Yes (Death, Other)
  Sender: FDA-Public Use
  Company Number: US-BAXTER-2009BH018708

PATIENT
  Age: 78 Year
  Sex: Male

DRUGS (9)
  1. HEPARIN SODIUM INJECTION [Suspect]
     Indication: INTRAVENOUS CATHETER MANAGEMENT
     Route: 058
     Dates: start: 20071226, end: 20071227
  2. HEPARIN SODIUM INJECTION [Suspect]
     Indication: DRUG USE FOR UNKNOWN INDICATION
     Route: 058
     Dates: start: 20071226, end: 20071227
  3. HEPARIN SODIUM INJECTION [Suspect]
     Route: 058
     Dates: start: 20080101, end: 20080109
  4. HEPARIN SODIUM INJECTION [Suspect]
     Route: 058
     Dates: start: 20080101, end: 20080109
  5. HEPARIN SODIUM INJECTION [Suspect]
     Route: 058
     Dates: start: 20080111, end: 20080112
  6. HEPARIN SODIUM INJECTION [Suspect]
     Route: 058
     Dates: start: 20080111, end: 20080112
  7. HEPARIN SODIUM INJECTION [Suspect]
     Route: 058
     Dates: start: 20080107, end: 20080107
  8. HEPARIN SODIUM INJECTION [Suspect]
     Route: 058
     Dates: start: 20080107, end: 20080107
  9. XIGRIS [Suspect]
     Indication: DRUG USE FOR UNKNOWN INDICATION
     Route: 065
     Dates: start: 20071227, end: 20071231

REACTIONS (20)
  - ACUTE RESPIRATORY FAILURE [None]
  - ANAEMIA [None]
  - CARDIOGENIC SHOCK [None]
  - CHEST PAIN [None]
  - CORONARY ARTERY DISEASE [None]
  - DEEP VEIN THROMBOSIS [None]
  - ENCEPHALOPATHY [None]
  - GANGRENE [None]
  - GASTROINTESTINAL HAEMORRHAGE [None]
  - HEPARIN-INDUCED THROMBOCYTOPENIA [None]
  - HYPOTENSION [None]
  - MULTI-ORGAN FAILURE [None]
  - MYOCARDIAL INFARCTION [None]
  - NAUSEA [None]
  - PNEUMONIA [None]
  - PULMONARY OEDEMA [None]
  - RENAL FAILURE ACUTE [None]
  - SEPSIS [None]
  - TACHYCARDIA [None]
  - VOMITING [None]
